FAERS Safety Report 15839031 (Version 3)
Quarter: 2019Q1

REPORT INFORMATION
  Report Type: Report from Study
  Country: US (occurrence: US)
  Receive Date: 20190117
  Receipt Date: 20190220
  Transmission Date: 20190417
  Serious: Yes (Hospitalization, Other)
  Sender: FDA-Public Use
  Company Number: US-BAYER-2019-002504

PATIENT
  Age: 64 Year
  Sex: Male

DRUGS (1)
  1. STIVARGA [Suspect]
     Active Substance: REGORAFENIB
     Indication: COLORECTAL CANCER
     Dosage: 160 MG, QD (21 DAYS THEN 7 DAYS OFF)
     Route: 048
     Dates: start: 20181226, end: 20190210

REACTIONS (9)
  - Colorectal cancer [None]
  - Dehydration [None]
  - Weight decreased [None]
  - Asthenia [None]
  - Abdominal pain [None]
  - Constipation [Not Recovered/Not Resolved]
  - Decreased appetite [Not Recovered/Not Resolved]
  - Fatigue [None]
  - Blood potassium increased [None]

NARRATIVE: CASE EVENT DATE: 20190211
